FAERS Safety Report 5096952-X (Version None)
Quarter: 2006Q3

REPORT INFORMATION
  Report Type: 
  Country: None (occurrence: None)
  Receive Date: 20060831
  Receipt Date: 20060831
  Transmission Date: 20061208
  Serious: Yes (Other)
  Sender: FDA-Public Use
  Company Number: None

PATIENT
  Age: 34 Year
  Sex: Male

DRUGS (3)
  1. PENTAMIDINE ISETHIONATE [Suspect]
     Indication: PNEUMOCYSTIS JIROVECI PNEUMONIA
     Dosage: DOSE 1X DOSE INHAL
     Route: 055
     Dates: start: 20060620, end: 20060620
  2. PENTAMIDINE ISETHIONATE [Suspect]
     Indication: PROPHYLAXIS
     Dosage: DOSE 1X DOSE INHAL
     Route: 055
     Dates: start: 20060620, end: 20060620
  3. PENTAMIDINE ISETHIONATE [Suspect]

REACTIONS (4)
  - BRONCHOSPASM [None]
  - COUGH [None]
  - DYSPNOEA [None]
  - SALIVARY HYPERSECRETION [None]
